FAERS Safety Report 26044981 (Version 1)
Quarter: 2025Q4

REPORT INFORMATION
  Report Type: Spontaneous
  Country: US (occurrence: US)
  Receive Date: 20251114
  Receipt Date: 20251114
  Transmission Date: 20260117
  Serious: No
  Sender: ALVOGEN
  Company Number: US-ALVOGEN-2025096144

PATIENT
  Sex: Female

DRUGS (1)
  1. TERIPARATIDE [Suspect]
     Active Substance: TERIPARATIDE
     Indication: Osteoporosis
     Dosage: 1 TIME A DAY?STRENGTH: 250 MCG/ML
     Route: 058
     Dates: start: 202412

REACTIONS (4)
  - Weight increased [Unknown]
  - Pollakiuria [Unknown]
  - Product dose omission issue [Unknown]
  - Product distribution issue [Unknown]
